FAERS Safety Report 4996081-7 (Version None)
Quarter: 2006Q2

REPORT INFORMATION
  Report Type: 
  Country: None (occurrence: None)
  Receive Date: 20060504
  Receipt Date: 20060404
  Transmission Date: 20061013
  Serious: Yes (Hospitalization)
  Sender: FDA-Public Use
  Company Number: 200583

PATIENT
  Age: 48 Year
  Sex: Female
  Weight: 62.4 kg

DRUGS (9)
  1. HERCEPTIN [Suspect]
     Indication: BREAST CANCER
     Dosage: 248 MG, SINGLE, INTRAVENOUS; SEE IMAGE
     Route: 042
     Dates: start: 20030326, end: 20030326
  2. HERCEPTIN [Suspect]
     Indication: BREAST CANCER
     Dosage: 248 MG, SINGLE, INTRAVENOUS; SEE IMAGE
     Route: 042
     Dates: start: 20030404
  3. DOCETAXEL (DOCETAXEL) [Suspect]
     Indication: BREAST CANCER
     Dosage: 130 MG, Q3W, INTRAVENOUS
     Route: 042
     Dates: start: 20030327
  4. CARBOPLATIN [Suspect]
     Indication: BREAST CANCER
     Dosage: 610 MG, Q3W, INTRAVENOUS
     Route: 042
     Dates: start: 20030327
  5. ACETAMINOPHEN [Concomitant]
  6. AMITRIPTYLINE HCL [Concomitant]
  7. PROCHLORPERAZINE MALEATE [Concomitant]
  8. DEXAMETHASONE [Concomitant]
  9. HEPARIN [Concomitant]

REACTIONS (5)
  - CARDIAC DISORDER [None]
  - FEBRILE NEUTROPENIA [None]
  - MYOCARDIAL INFARCTION [None]
  - PULMONARY EMBOLISM [None]
  - SINUS TACHYCARDIA [None]
